FAERS Safety Report 6556765-6 (Version None)
Quarter: 2010Q1

REPORT INFORMATION
  Report Type: 
  Country: None (occurrence: None)
  Receive Date: 20100128
  Receipt Date: 20100115
  Transmission Date: 20100710
  Serious: Yes (Other)
  Sender: FDA-Public Use
  Company Number: FR-PFIZER INC-2010005904

PATIENT
  Age: 31 Year
  Sex: Male

DRUGS (4)
  1. LYRICA [Suspect]
     Dosage: 75 MG, 3X/DAY
  2. ABACAVIR/LAMIVUDINE [Concomitant]
     Dosage: 600 UNK, 1X/DAY
  3. NORVIR [Concomitant]
     Dosage: 100 UNK, 1X/DAY
  4. REYATAZ [Concomitant]
     Dosage: 300 UNK, 1X/DAY

REACTIONS (1)
  - VIRAL LOAD INCREASED [None]
